FAERS Safety Report 7755228-X (Version None)
Quarter: 2011Q3

REPORT INFORMATION
  Report Type: 
  Country: None (occurrence: None)
  Receive Date: 20110914
  Receipt Date: 20110901
  Transmission Date: 20111222
  Serious: Yes (Death, Hospitalization, Other)
  Sender: FDA-Public Use
  Company Number: US-2011-10640

PATIENT
  Age: 14 Year
  Sex: Female

DRUGS (7)
  1. ANTIHYMOCYTE IMMUNOGLOBULIN (ANTIHYMOCYTE IMMUNOGLOBULIN) [Concomitant]
  2. MYCOPHENOLATE MOFETIL [Concomitant]
  3. CYCLOPHOSPHAMIDE [Suspect]
     Indication: STEM CELL TRANSPLANT
  4. CORTICOSTEROIDS [Concomitant]
  5. BUSULFEX [Suspect]
     Indication: STEM CELL TRANSPLANT
     Dosage: INTRAVENOUS
     Route: 042
  6. METHOTREXATE [Concomitant]
  7. CYCLOSPORINE [Concomitant]

REACTIONS (11)
  - ACUTE RESPIRATORY FAILURE [None]
  - EXTRAPYRAMIDAL DISORDER [None]
  - MENINGOENCEPHALITIS ADENOVIRAL [None]
  - SEPTIC SHOCK [None]
  - DIABETES INSIPIDUS [None]
  - GRAFT VERSUS HOST DISEASE [None]
  - DELIRIUM [None]
  - CONFUSIONAL STATE [None]
  - PNEUMONIA ASPIRATION [None]
  - ADENOVIRUS TEST POSITIVE [None]
  - CYTOMEGALOVIRUS INFECTION [None]
